FAERS Safety Report 17238167 (Version 1)
Quarter: 2020Q1

REPORT INFORMATION
  Report Type: Spontaneous
  Country: US (occurrence: US)
  Receive Date: 20200106
  Receipt Date: 20200106
  Transmission Date: 20200409
  Serious: Yes (Other)
  Sender: FDA-Public Use
  Company Number: US-PACIRA-201900366

PATIENT

DRUGS (2)
  1. EXPAREL [Suspect]
     Active Substance: BUPIVACAINE
     Indication: POSTOPERATIVE ANALGESIA
     Dosage: 266 MG IN 20ML SOLUTION, 20ML 0.5% BUPIVACAINE, 80 ML 0.9% NORMAL SALINE
  2. BUPIVACAINE. [Suspect]
     Active Substance: BUPIVACAINE
     Indication: POSTOPERATIVE ANALGESIA
     Dosage: 20ML 0.5% BUPIVACAINE, 80 ML 0.9% NORMAL SALINE

REACTIONS (1)
  - Delirium [Unknown]
